FAERS Safety Report 7606827-7 (Version None)
Quarter: 2011Q3

REPORT INFORMATION
  Report Type: 
  Country: None (occurrence: None)
  Receive Date: 20110713
  Receipt Date: 20110706
  Transmission Date: 20111222
  Serious: Yes (Other)
  Sender: FDA-Public Use
  Company Number: US-GLAXOSMITHKLINE-A0917573A

PATIENT
  Sex: Female

DRUGS (2)
  1. XELODA [Suspect]
     Indication: BREAST CANCER
     Dosage: 1150MG CYCLIC
     Route: 048
     Dates: start: 20101001
  2. TYKERB [Suspect]
     Indication: BREAST CANCER
     Dosage: 1250MG PER DAY
     Route: 048

REACTIONS (11)
  - LYMPHOEDEMA [None]
  - PALMAR-PLANTAR ERYTHRODYSAESTHESIA SYNDROME [None]
  - SKIN CHAPPED [None]
  - ARTHRALGIA [None]
  - ADVERSE EVENT [None]
  - PARAESTHESIA [None]
  - HYPOAESTHESIA [None]
  - OEDEMA [None]
  - PAIN IN EXTREMITY [None]
  - MACULE [None]
  - OEDEMA PERIPHERAL [None]
